FAERS Safety Report 8446401-6 (Version None)
Quarter: 2012Q2

REPORT INFORMATION
  Report Type: 
  Country: None (occurrence: None)
  Receive Date: 20120618
  Receipt Date: 20120118
  Transmission Date: 20120825
  Serious: No
  Sender: FDA-Public Use
  Company Number: US-TEVA-319184USA

PATIENT

DRUGS (1)
  1. ACTIQ [Suspect]
     Indication: PAIN
     Route: 002

REACTIONS (3)
  - DENTAL CARIES [None]
  - OFF LABEL USE [None]
  - DRUG PRESCRIBING ERROR [None]
